FAERS Safety Report 9166698 (Version 1)
Quarter: 2013Q1

REPORT INFORMATION
  Report Type: Report from Study
  Country: US (occurrence: US)
  Receive Date: 20130315
  Receipt Date: 20130315
  Transmission Date: 20140127
  Serious: Yes (Hospitalization, Other)
  Sender: FDA-Public Use
  Company Number: US-009507513-1303USA004884

PATIENT
  Sex: Male

DRUGS (3)
  1. RIBAVIRIN (WARRICK) [Suspect]
     Indication: HEPATITIS C
     Dosage: UNK
     Route: 048
     Dates: start: 20111130, end: 20120415
  2. VICTRELIS [Suspect]
     Dosage: UNK
     Route: 048
     Dates: start: 20111229, end: 20120415
  3. PEGINTERFERON ALFA-2A [Suspect]
     Indication: HEPATITIS C
     Dosage: UNK
     Dates: start: 20111130, end: 20120415

REACTIONS (2)
  - Cardiac failure [Unknown]
  - Renal disorder [Unknown]
